FAERS Safety Report 5214790-1 (Version None)
Quarter: 2007Q1

REPORT INFORMATION
  Report Type: 
  Country: None (occurrence: None)
  Receive Date: 20070122
  Receipt Date: 20070122
  Transmission Date: 20070707
  Serious: No
  Sender: FDA-Public Use
  Company Number: None

PATIENT
  Sex: Female
  Weight: 63.5036 kg

DRUGS (1)
  1. LISINOPRIL [Suspect]
     Indication: HYPERTENSION
     Dosage: 20 MG 1/DAY

REACTIONS (5)
  - COUGH [None]
  - DIABETES MELLITUS [None]
  - HYPERTENSION [None]
  - SENSORY DISTURBANCE [None]
  - VERTIGO POSITIONAL [None]
